FAERS Safety Report 6607040-2 (Version None)
Quarter: 2010Q1

REPORT INFORMATION
  Report Type: 
  Country: None (occurrence: None)
  Receive Date: 20100219
  Receipt Date: 20100208
  Transmission Date: 20100710
  Serious: Yes (Hospitalization)
  Sender: FDA-Public Use
  Company Number: 2010BM000009

PATIENT
  Age: 20 Year
  Sex: Female
  Weight: 68.2 kg

DRUGS (3)
  1. KUVAN [Suspect]
     Indication: PHENYLKETONURIA
     Dosage: 1300 MG, QD; PO, 1300 MG, QD, PO
     Route: 048
     Dates: start: 20081005, end: 20091225
  2. KUVAN [Suspect]
     Indication: PHENYLKETONURIA
     Dosage: 1300 MG, QD; PO, 1300 MG, QD, PO
     Route: 048
     Dates: start: 20100101
  3. LUTERA-28 [Concomitant]

REACTIONS (2)
  - APPENDICITIS [None]
  - TREATMENT NONCOMPLIANCE [None]
